FAERS Safety Report 19635542 (Version 1)
Quarter: 2021Q3

REPORT INFORMATION
  Report Type: Spontaneous
  Country: US (occurrence: US)
  Receive Date: 20210730
  Receipt Date: 20210730
  Transmission Date: 20211014
  Serious: Yes (Hospitalization)
  Sender: FDA-Public Use
  Company Number: NVSC2021US169739

PATIENT
  Sex: Male

DRUGS (2)
  1. RANITIDINE. [Suspect]
     Active Substance: RANITIDINE
     Indication: CHEST PAIN
     Dosage: 300 MG, QD
     Route: 048
     Dates: start: 200709, end: 201911
  2. RANITIDINE. [Suspect]
     Active Substance: RANITIDINE
     Indication: CHEST PAIN
     Dosage: 300 MG, QD
     Route: 048
     Dates: start: 200709, end: 201911

REACTIONS (2)
  - Prostate cancer [Recovered/Resolved]
  - Product use in unapproved indication [Unknown]
